FAERS Safety Report 4392913-4 (Version None)
Quarter: 2004Q3

REPORT INFORMATION
  Report Type: 
  Country: None (occurrence: None)
  Receive Date: 20040702
  Receipt Date: 20040625
  Transmission Date: 20050211
  Serious: Yes (Hospitalization)
  Sender: FDA-Public Use
  Company Number: 2004-02832

PATIENT
  Age: 74 Year
  Sex: Female

DRUGS (3)
  1. TRAZODONE HCL [Suspect]
     Indication: MAJOR DEPRESSION
     Dosage: 100 MG, DAILY, X 2 DAYS, ORAL
     Route: 048
  2. CLONAZEPAM [Suspect]
     Indication: MAJOR DEPRESSION
     Dosage: 4 MG, DAILY X 6 MONTHS, ORAL
     Route: 048
  3. CITALOPRAM (CITALOPRAM) [Suspect]
     Indication: MAJOR DEPRESSION
     Dosage: 40 MG, DAILY X 6 MONTHS, ORAL
     Route: 048

REACTIONS (3)
  - DRUG INTERACTION POTENTIATION [None]
  - DYSPHAGIA [None]
  - SEROTONIN SYNDROME [None]
